FAERS Safety Report 20573986 (Version 1)
Quarter: 2022Q1

REPORT INFORMATION
  Report Type: Spontaneous
  Country: US (occurrence: US)
  Receive Date: 20220309
  Receipt Date: 20220309
  Transmission Date: 20220424
  Serious: Yes (Other)
  Sender: FDA-Public Use
  Company Number: US-PFIZER INC-202200364044

PATIENT
  Age: 61 Year
  Sex: Female

DRUGS (1)
  1. XELJANZ [Suspect]
     Active Substance: TOFACITINIB CITRATE
     Dosage: 15 MG (10MG BY MOUTH IN THE MORNING AND 5 MG BY MOUTH IN THE EVENING)
     Route: 048
     Dates: start: 20190104

REACTIONS (6)
  - Colitis ulcerative [Recovered/Resolved]
  - Off label use [Unknown]
  - Abdominal pain [Recovered/Resolved]
  - Diarrhoea [Recovered/Resolved]
  - COVID-19 [Recovered/Resolved]
  - Paranasal sinus discomfort [Unknown]

NARRATIVE: CASE EVENT DATE: 20190104
